FAERS Safety Report 4648273-4 (Version None)
Quarter: 2005Q2

REPORT INFORMATION
  Report Type: 
  Country: None (occurrence: None)
  Receive Date: 20050426
  Receipt Date: 20050415
  Transmission Date: 20051028
  Serious: Yes (Other)
  Sender: FDA-Public Use
  Company Number: 200510762BWH

PATIENT
  Sex: Male

DRUGS (1)
  1. CIPROFLOXACIN HYDROCHLORIDE [Suspect]
     Dosage: 500 MG BID TRANSPLACENTAL
     Route: 064
     Dates: start: 20021201, end: 20021205

REACTIONS (4)
  - CAESAREAN SECTION [None]
  - CONGENITAL EYELID MALFORMATION [None]
  - DRUG EXPOSURE DURING PREGNANCY [None]
  - DRUG PRESCRIBING ERROR [None]
